FAERS Safety Report 15421895 (Version 2)
Quarter: 2019Q3

REPORT INFORMATION
  Report Type: Spontaneous
  Country: US (occurrence: US)
  Receive Date: 20180924
  Receipt Date: 20190917
  Transmission Date: 20191004
  Serious: No
  Sender: FDA-Public Use
  Company Number: US-ALLERGAN-1839273US

PATIENT
  Sex: Female

DRUGS (5)
  1. LINZESS [Suspect]
     Active Substance: LINACLOTIDE
     Indication: CONSTIPATION
     Dosage: 145 ?G, QAM
     Route: 065
     Dates: start: 201807, end: 201807
  2. OXYCODON [Concomitant]
     Active Substance: OXYCODONE
     Indication: MUSCLE RELAXANT THERAPY
  3. OXYCODON [Concomitant]
     Active Substance: OXYCODONE
     Indication: PAIN
     Route: 065
  4. ACETAM [Concomitant]
     Active Substance: ACETAMINOPHEN
     Indication: PAIN
     Route: 065
  5. ACETAM [Concomitant]
     Active Substance: ACETAMINOPHEN
     Indication: MUSCLE RELAXANT THERAPY

REACTIONS (2)
  - Drug ineffective for unapproved indication [Unknown]
  - Off label use [Unknown]
